FAERS Safety Report 9136149 (Version 1)
Quarter: 2013Q1

REPORT INFORMATION
  Report Type: Spontaneous
  Country: US (occurrence: US)
  Receive Date: 20130304
  Receipt Date: 20130304
  Transmission Date: 20140127
  Serious: Yes (Other)
  Sender: FDA-Public Use
  Company Number: US-GLAXOSMITHKLINE-A0996146A

PATIENT
  Sex: Female

DRUGS (1)
  1. ADVAIR [Suspect]
     Indication: PRODUCT USED FOR UNKNOWN INDICATION
     Route: 065
     Dates: end: 2012

REACTIONS (11)
  - Osteoporotic fracture [Unknown]
  - Hip arthroplasty [Unknown]
  - Osteoporosis [Unknown]
  - Pain [Unknown]
  - Sleep disorder [Unknown]
  - Blood glucose increased [Unknown]
  - Night sweats [Unknown]
  - Weight increased [Unknown]
  - Arthropathy [Unknown]
  - Osteoarthritis [Unknown]
  - Weight decreased [Unknown]
